FAERS Safety Report 24072457 (Version 1)
Quarter: 2024Q3

REPORT INFORMATION
  Report Type: Spontaneous
  Country: CN (occurrence: CN)
  Receive Date: 20240710
  Receipt Date: 20240710
  Transmission Date: 20241017
  Serious: Yes (Hospitalization, Other)
  Sender: ALEXION PHARMACEUTICALS
  Company Number: CN-ALXN-202407CHN000098CN

PATIENT
  Age: 60 Year
  Sex: Female
  Weight: 58 kg

DRUGS (1)
  1. SOLIRIS [Suspect]
     Active Substance: ECULIZUMAB
     Indication: Systemic lupus erythematosus
     Dosage: UNK, Q2W
     Route: 041
     Dates: start: 20240615

REACTIONS (9)
  - Intracranial pressure increased [Recovering/Resolving]
  - Intracranial infection [Unknown]
  - CSF white blood cell count increased [Recovering/Resolving]
  - CSF lactate dehydrogenase increased [Recovering/Resolving]
  - Productive cough [Unknown]
  - Oropharyngeal pain [Unknown]
  - Myalgia [Unknown]
  - Headache [Recovering/Resolving]
  - Off label use [Unknown]

NARRATIVE: CASE EVENT DATE: 20240616
